FAERS Safety Report 15850971 (Version 1)
Quarter: 2019Q1

REPORT INFORMATION
  Report Type: Report from Study
  Country: None (occurrence: CA)
  Receive Date: 20190121
  Receipt Date: 20190121
  Transmission Date: 20190417
  Serious: Yes (Hospitalization, Other)
  Sender: FDA-Public Use
  Company Number: CA-ABBVIE-19K-028-2630851-00

PATIENT
  Age: 26 Year
  Sex: Male

DRUGS (1)
  1. HUMIRA [Suspect]
     Active Substance: ADALIMUMAB
     Indication: CROHN^S DISEASE
     Route: 058
     Dates: start: 20120419

REACTIONS (16)
  - Fistula of small intestine [Recovered/Resolved]
  - Anorectal discomfort [Unknown]
  - Malnutrition [Unknown]
  - Gastrointestinal wall thickening [Unknown]
  - Malabsorption [Unknown]
  - Anal abscess [Unknown]
  - Frequent bowel movements [Unknown]
  - Inflammatory bowel disease [Unknown]
  - Gastrointestinal disorder [Unknown]
  - Weight increased [Unknown]
  - Hypovitaminosis [Unknown]
  - Abdominal pain [Recovered/Resolved]
  - Amylase increased [Unknown]
  - Postoperative adhesion [Unknown]
  - Infectious colitis [Unknown]
  - Oral fungal infection [Unknown]

NARRATIVE: CASE EVENT DATE: 20181222
